FAERS Safety Report 7650037-4 (Version None)
Quarter: 2011Q3

REPORT INFORMATION
  Report Type: 
  Country: None (occurrence: None)
  Receive Date: 20110802
  Receipt Date: 20110802
  Transmission Date: 20111222
  Serious: No
  Sender: FDA-Public Use
  Company Number: None

PATIENT
  Age: 13 Month
  Sex: Female
  Weight: 9.0718 kg

DRUGS (1)
  1. ORAL PEDIATRIC ELECTROLYTE [Suspect]
     Indication: DEHYDRATION
     Dosage: OTC
     Route: 048
     Dates: start: 20110731, end: 20110801

REACTIONS (2)
  - DIARRHOEA [None]
  - PRODUCT COMPOUNDING QUALITY ISSUE [None]
